FAERS Safety Report 10216581 (Version 1)
Quarter: 2014Q2

REPORT INFORMATION
  Report Type: Spontaneous
  Country: US (occurrence: US)
  Receive Date: 20140604
  Receipt Date: 20140604
  Transmission Date: 20141212
  Serious: Yes (Hospitalization, Other)
  Sender: FDA-Public Use
  Company Number: US-SHIONOGI, INC-2014000519

PATIENT
  Sex: Male

DRUGS (3)
  1. KEFLEX [Suspect]
     Indication: ANTIBIOTIC PROPHYLAXIS
     Dosage: UNK
     Route: 065
     Dates: start: 201303
  2. HUMIRA [Suspect]
     Indication: SERONEGATIVE ARTHRITIS
     Dosage: 40 MG SOLUTION FOR INJECTION-PREFILLED PEN
     Route: 065
     Dates: start: 2012, end: 201303
  3. HUMIRA [Suspect]
     Dosage: 40 MG SOLUTION FOR INJECTION-PREFILLED PEN
     Route: 065

REACTIONS (4)
  - Rotator cuff syndrome [Recovered/Resolved]
  - Blister [Recovered/Resolved]
  - Joint arthroplasty [Recovered/Resolved]
  - Joint dislocation [Recovered/Resolved]
